FAERS Safety Report 6141196-3 (Version None)
Quarter: 2009Q1

REPORT INFORMATION
  Report Type: 
  Country: None (occurrence: None)
  Receive Date: 20090330
  Receipt Date: 20090330
  Transmission Date: 20090719
  Serious: Yes (Other)
  Sender: FDA-Public Use
  Company Number: None

PATIENT
  Age: 39 Year
  Sex: Female
  Weight: 78.0187 kg

DRUGS (1)
  1. LOESTRIN 21 1/20 [Suspect]
     Indication: CONTRACEPTION
     Dosage: 1 TABLET ONCE PER DAY PO
     Route: 048
     Dates: start: 20090220, end: 20090327

REACTIONS (5)
  - CHEST DISCOMFORT [None]
  - CHEST PAIN [None]
  - PALPITATIONS [None]
  - PRODUCT QUALITY ISSUE [None]
  - SUPRAVENTRICULAR EXTRASYSTOLES [None]
